FAERS Safety Report 6274781-9 (Version None)
Quarter: 2009Q3

REPORT INFORMATION
  Report Type: 
  Country: None (occurrence: None)
  Receive Date: 20090717
  Receipt Date: 20090703
  Transmission Date: 20100115
  Serious: Yes (Death, Other)
  Sender: FDA-Public Use
  Company Number: 2009BI020722

PATIENT
  Age: 59 Year
  Sex: Female

DRUGS (2)
  1. ZEVALIN [Suspect]
     Indication: B-CELL LYMPHOMA
     Dosage: 1X; IV
     Route: 042
     Dates: start: 20050101, end: 20070101
  2. RITUXIMAB [Concomitant]

REACTIONS (8)
  - ATAXIA [None]
  - B-CELL LYMPHOMA [None]
  - CEREBELLAR SYNDROME [None]
  - DISEASE PROGRESSION [None]
  - HEAD TITUBATION [None]
  - NYSTAGMUS [None]
  - PLEURAL EFFUSION [None]
  - PROGRESSIVE MULTIFOCAL LEUKOENCEPHALOPATHY [None]
